FAERS Safety Report 24671977 (Version 1)
Quarter: 2024Q4

REPORT INFORMATION
  Report Type: Spontaneous
  Country: US (occurrence: US)
  Receive Date: 20241127
  Receipt Date: 20241127
  Transmission Date: 20250115
  Serious: No
  Sender: JOHNSON AND JOHNSON
  Company Number: US-JNJFOC-20241136390

PATIENT
  Sex: Female

DRUGS (3)
  1. RYBREVANT [Suspect]
     Active Substance: AMIVANTAMAB-VMJW
     Indication: Non-small cell lung cancer
     Route: 042
  2. LAZCLUZE [Suspect]
     Active Substance: LAZERTINIB
     Indication: Non-small cell lung cancer
     Route: 048
  3. LAZERTINIB [Suspect]
     Active Substance: LAZERTINIB

REACTIONS (3)
  - Dysphonia [Unknown]
  - Aphonia [Unknown]
  - Rash [Unknown]
